FAERS Safety Report 14610372 (Version 1)
Quarter: 2018Q1

REPORT INFORMATION
  Report Type: Spontaneous
  Country: NL (occurrence: NL)
  Receive Date: 20180307
  Receipt Date: 20180307
  Transmission Date: 20180509
  Serious: Yes (Other)
  Sender: FDA-Public Use
  Company Number: NL-TEVA-2018-NL-864565

PATIENT
  Age: 52 Year
  Sex: Male

DRUGS (2)
  1. BEVACIZUMAB. [Concomitant]
     Active Substance: BEVACIZUMAB
     Indication: PRODUCT USED FOR UNKNOWN INDICATION
     Dates: start: 20171206, end: 20171227
  2. OXALIPLATIN. [Suspect]
     Active Substance: OXALIPLATIN
     Indication: PRODUCT USED FOR UNKNOWN INDICATION
     Dates: start: 20171206, end: 20171227

REACTIONS (1)
  - Stridor [Recovered/Resolved]

NARRATIVE: CASE EVENT DATE: 20171206
